FAERS Safety Report 18476195 (Version 1)
Quarter: 2020Q4

REPORT INFORMATION
  Report Type: Spontaneous
  Country: US (occurrence: US)
  Receive Date: 20201106
  Receipt Date: 20201106
  Transmission Date: 20210114
  Serious: Yes (Other)
  Sender: FDA-Public Use
  Company Number: US-FRESENIUS KABI-FK202011742

PATIENT

DRUGS (2)
  1. NO DRUG NAME [Suspect]
     Active Substance: UNSPECIFIED INGREDIENT
     Indication: PRODUCT USED FOR UNKNOWN INDICATION
     Dosage: UNKNOWN
     Route: 065
  2. DILAUDID [Suspect]
     Active Substance: HYDROMORPHONE HYDROCHLORIDE
     Indication: GENERAL SYMPTOM
     Dosage: UNKNOWN

REACTIONS (7)
  - Osteoporosis [Unknown]
  - Hip fracture [Unknown]
  - Depression [Unknown]
  - Erectile dysfunction [Unknown]
  - Stress [Unknown]
  - Dependence [Unknown]
  - Constipation [Unknown]
